FAERS Safety Report 15458654 (Version 1)
Quarter: 2018Q4

REPORT INFORMATION
  Report Type: Spontaneous
  Country: US (occurrence: US)
  Receive Date: 20181001
  Receipt Date: 20181001
  Transmission Date: 20190204
  Serious: No
  Sender: FDA-Public Use
  Company Number: None

PATIENT
  Age: 65 Year
  Weight: 77.11 kg

DRUGS (1)
  1. AIMOVIG [Suspect]
     Active Substance: ERENUMAB-AOOE
     Indication: MIGRAINE
     Route: 058
     Dates: start: 20180808

REACTIONS (8)
  - Sedation [None]
  - Nausea [None]
  - Vomiting [None]
  - Hepatic function abnormal [None]
  - Abdominal pain [None]
  - Laboratory test interference [None]
  - Gastrooesophageal reflux disease [None]
  - White blood cell count increased [None]

NARRATIVE: CASE EVENT DATE: 20180817
